FAERS Safety Report 24358766 (Version 1)
Quarter: 2024Q3

REPORT INFORMATION
  Report Type: Spontaneous
  Country: US (occurrence: None)
  Receive Date: 20240923
  Receipt Date: 20240923
  Transmission Date: 20241016
  Serious: Yes (Other)
  Sender: Public
  Company Number: None

PATIENT
  Age: 46 Year
  Sex: Female
  Weight: 81.1 kg

DRUGS (1)
  1. INFLECTRA [Suspect]
     Active Substance: INFLIXIMAB-DYYB

REACTIONS (6)
  - Hyperhidrosis [None]
  - Chills [None]
  - Tremor [None]
  - Incoherent [None]
  - Dizziness [None]
  - Mobility decreased [None]

NARRATIVE: CASE EVENT DATE: 20240903
